FAERS Safety Report 6767570-X (Version None)
Quarter: 2010Q2

REPORT INFORMATION
  Report Type: 
  Country: None (occurrence: None)
  Receive Date: 20100614
  Receipt Date: 20100601
  Transmission Date: 20101027
  Serious: Yes (Other)
  Sender: FDA-Public Use
  Company Number: PHHY2010CA36856

PATIENT
  Sex: Male

DRUGS (9)
  1. CLOZARIL [Suspect]
     Dosage: 450 MG HS (CRUSHED)
     Dates: start: 20080408, end: 20100525
  2. OMEGA-3 FATTY ACIDS [Concomitant]
     Dosage: 3000 MG
     Dates: start: 20100526
  3. OLANZAPINE [Concomitant]
     Dosage: 5 MG HS
     Dates: start: 20100514, end: 20100526
  4. DOCUSATE SODIUM [Concomitant]
     Dosage: 100 MG, BID
     Dates: start: 20100514
  5. PANTOPRAZOLE SODIUM [Concomitant]
     Dosage: 40 MG
     Dates: start: 20100526
  6. QUETIAPINE FUMARATE [Concomitant]
     Dosage: 25 MG Q4H PRN
     Dates: start: 20100527
  7. LORAZEPAM [Concomitant]
     Dosage: 1-2 MG TID PRN
     Route: 048
     Dates: start: 20100514, end: 20100526
  8. RABEPRAZOLE SODIUM [Concomitant]
     Dosage: 20 MG
     Dates: start: 20100514
  9. DOCUSATE CALCIUM [Concomitant]
     Dosage: 450 MG DAILY

REACTIONS (5)
  - AGRANULOCYTOSIS [None]
  - CHOLELITHIASIS [None]
  - HEPATIC CYST [None]
  - NEUTROPHIL COUNT DECREASED [None]
  - WHITE BLOOD CELL COUNT DECREASED [None]
